FAERS Safety Report 24771860 (Version 1)
Quarter: 2024Q4

REPORT INFORMATION
  Report Type: Spontaneous
  Country: CH (occurrence: CH)
  Receive Date: 20241224
  Receipt Date: 20241224
  Transmission Date: 20250115
  Serious: Yes (Hospitalization)
  Sender: PURDUE
  Company Number: CH-PURDUE-USA-2024-0314208

PATIENT
  Age: 69 Year
  Sex: Male
  Weight: 44 kg

DRUGS (17)
  1. OXYCODONE HYDROCHLORIDE [Suspect]
     Active Substance: OXYCODONE HYDROCHLORIDE
     Indication: Product used for unknown indication
     Dosage: 5 MG CAPSULES 1-2 CAPSULES AS NEEDED EVERY 2 HOURS
     Route: 048
  2. NALOXONE HYDROCHLORIDE\OXYCODONE HYDROCHLORIDE [Suspect]
     Active Substance: NALOXONE HYDROCHLORIDE\OXYCODONE HYDROCHLORIDE
     Indication: Product used for unknown indication
     Dosage: 5/2.5 MG 1-0-1-0
     Route: 048
  3. BESREMI [Suspect]
     Active Substance: ROPEGINTERFERON ALFA-2B-NJFT
     Indication: Polycythaemia vera
     Dosage: 250 ?G EVERY FORTNIGHT
     Route: 065
     Dates: start: 202101, end: 20230824
  4. HYDROXYUREA [Suspect]
     Active Substance: HYDROXYUREA
     Indication: Polycythaemia vera
     Dosage: 500 MG PER DAY FROM MONDAY TILL SATURDAY
     Route: 065
     Dates: start: 202101, end: 20231025
  5. HYDROXYUREA [Suspect]
     Active Substance: HYDROXYUREA
     Dosage: INCREASED TO 500 MG DAILY
     Route: 048
     Dates: start: 20231026
  6. NORVASC [Suspect]
     Active Substance: AMLODIPINE BESYLATE
     Indication: Product used for unknown indication
     Dosage: 5 MG 1-0-0-0
     Route: 048
  7. ASPIRIN [Concomitant]
     Active Substance: ASPIRIN
     Indication: Product used for unknown indication
     Dosage: 100 MG 1-0-0-0
     Route: 048
  8. CALCIMAGON D3 FORTE [Concomitant]
     Indication: Product used for unknown indication
     Dosage: 1-0-0-0
     Route: 048
  9. Bioflorin [Concomitant]
     Indication: Product used for unknown indication
     Dosage: 1-1-1-0
     Route: 048
  10. FRESUBIN [Concomitant]
     Active Substance: AMINO ACIDS\DEXTROSE\ELECTROLYTES NOS\SOYBEAN OIL\VITAMINS
     Indication: Product used for unknown indication
     Dosage: 200 ML 1-1-0-0
     Route: 048
  11. NEBIVOLOL [Concomitant]
     Active Substance: NEBIVOLOL
     Indication: Product used for unknown indication
     Dosage: 5 MG 0.5-0-0-0
     Route: 048
  12. ACETAMINOPHEN [Concomitant]
     Active Substance: ACETAMINOPHEN
     Indication: Product used for unknown indication
     Dosage: 500 MG 1-1-1-1
     Route: 048
  13. Novalgin [Concomitant]
     Indication: Product used for unknown indication
     Dosage: 500 MG UP TO 4X DAILY AS NEEDED
     Route: 048
  14. Paspertin [Concomitant]
     Indication: Product used for unknown indication
     Dosage: 10 MG UP TO 3X DAILY AS NEEDED
     Route: 048
  15. MOVICOL [Concomitant]
     Active Substance: POLYETHYLENE GLYCOL 3350\POTASSIUM CHLORIDE\SODIUM BICARBONATE\SODIUM CHLORIDE
     Indication: Product used for unknown indication
     Dosage: UP TO 1X DAILY AS NEEDED
     Route: 048
  16. SODIUM PICOSULFATE [Concomitant]
     Active Substance: SODIUM PICOSULFATE
     Indication: Product used for unknown indication
     Dosage: 8-10 DROPS AS NEEDED
     Route: 048
  17. INREBIC [Concomitant]
     Active Substance: FEDRATINIB HYDROCHLORIDE
     Indication: Polycythaemia vera
     Dosage: 200 MG DAILY
     Route: 065
     Dates: start: 20230825

REACTIONS (2)
  - Malnutrition [Recovering/Resolving]
  - Abnormal loss of weight [Recovering/Resolving]

NARRATIVE: CASE EVENT DATE: 20230401
